FAERS Safety Report 18005959 (Version 2)
Quarter: 2020Q4

REPORT INFORMATION
  Report Type: Report from Study
  Country: US (occurrence: US)
  Receive Date: 20200710
  Receipt Date: 20201106
  Transmission Date: 20210113
  Serious: Yes (Death, Hospitalization)
  Sender: FDA-Public Use
  Company Number: NVSC2020US193369

PATIENT
  Age: 82 Year
  Sex: Male

DRUGS (1)
  1. ENTRESTO [Suspect]
     Active Substance: SACUBITRIL\VALSARTAN
     Indication: CARDIAC FAILURE
     Dosage: 1 DF, BID (49/51 MG)
     Route: 048
     Dates: start: 201910

REACTIONS (4)
  - Agitation [Unknown]
  - Haemorrhagic stroke [Fatal]
  - Cerebrovascular accident [Unknown]
  - Malaise [Unknown]

NARRATIVE: CASE EVENT DATE: 201910
